FAERS Safety Report 5311686-1 (Version None)
Quarter: 2007Q2

REPORT INFORMATION
  Report Type: 
  Country: None (occurrence: None)
  Receive Date: 20070430
  Receipt Date: 20070102
  Transmission Date: 20071010
  Serious: No
  Sender: FDA-Public Use
  Company Number: 2007UW00073

PATIENT
  Age: 34 Year
  Sex: Female

DRUGS (11)
  1. ZOMIG [Suspect]
     Indication: MIGRAINE
     Route: 045
  2. LEVOTHYROXINE SODIUM [Concomitant]
  3. LIPITOR [Concomitant]
  4. ABILIFY [Concomitant]
  5. TRAZODONE HCL [Concomitant]
  6. BACTRIM [Concomitant]
  7. RANITIDINE [Concomitant]
  8. TEMAZEPAM [Concomitant]
  9. TOPAMAX [Concomitant]
  10. NASAL SPRAY [Concomitant]
  11. PHENAZOPYRIDINE HCL TAB [Concomitant]

REACTIONS (1)
  - SNEEZING [None]
